FAERS Safety Report 24389181 (Version 2)
Quarter: 2024Q4

REPORT INFORMATION
  Report Type: Report from Study
  Country: US (occurrence: US)
  Receive Date: 20241002
  Receipt Date: 20241015
  Transmission Date: 20250114
  Serious: Yes (Other)
  Sender: ABBVIE
  Company Number: US-ABBVIE-5870359

PATIENT
  Age: 54 Year
  Sex: Male
  Weight: 108 kg

DRUGS (24)
  1. RINVOQ [Suspect]
     Active Substance: UPADACITINIB
     Indication: Rheumatoid arthritis
     Route: 048
     Dates: start: 20200825
  2. AZELASTINE [Concomitant]
     Active Substance: AZELASTINE
     Indication: Sinus disorder
     Route: 065
     Dates: start: 20240730
  3. ARAVA [Concomitant]
     Active Substance: LEFLUNOMIDE
     Indication: Myalgia
     Dosage: 1 IN THE MORNING
     Route: 065
     Dates: start: 20211026
  4. MAGNESIUM [Concomitant]
     Active Substance: MAGNESIUM
     Indication: Angiopathy
     Dosage: 1 AT NIGHT
     Route: 065
     Dates: start: 20211206
  5. PROTONIX [Concomitant]
     Active Substance: PANTOPRAZOLE SODIUM
     Indication: Gastrooesophageal reflux disease
     Dosage: 1 PRE-BREAKFAST AND 1 PRE-DINNER
     Route: 065
     Dates: start: 20240307
  6. PRIMIDONE [Concomitant]
     Active Substance: PRIMIDONE
     Indication: Tremor
     Dosage: TIME INTERVAL: 0.33333333 DAYS
     Route: 065
     Dates: start: 20230105
  7. RIZATRIPTAN BENZOATE [Concomitant]
     Active Substance: RIZATRIPTAN BENZOATE
     Indication: Migraine
     Dosage: 1 AS NEEDED
     Route: 048
  8. PPV [Concomitant]
     Indication: Infection prophylaxis
     Route: 065
     Dates: start: 20240710
  9. ACETAMINOPHEN [Concomitant]
     Active Substance: ACETAMINOPHEN
     Indication: Back pain
     Dosage: 1 AS NEEDED
     Route: 048
     Dates: start: 20220417
  10. GINGER [Concomitant]
     Active Substance: GINGER
     Indication: Impaired gastric emptying
     Dosage: 1 AS NEEDED WITH MEALS
     Route: 065
     Dates: start: 20210717
  11. HYDROCORTISONE ACETATE [Concomitant]
     Active Substance: HYDROCORTISONE ACETATE
     Indication: Impaired gastric emptying
     Route: 065
     Dates: start: 20240316
  12. CLONAZEPAM [Concomitant]
     Active Substance: CLONAZEPAM
     Indication: Sleep disorder
     Dosage: 1 1/2 AT BEDTIME
     Route: 065
     Dates: start: 20240119
  13. TIZANIDINE HYDROCHLORIDE [Concomitant]
     Active Substance: TIZANIDINE HYDROCHLORIDE
     Indication: Headache
     Dosage: 1 AT NIGHT
     Route: 048
     Dates: start: 20220303
  14. TROKENDI XR [Concomitant]
     Active Substance: TOPIRAMATE
     Indication: Migraine
     Dosage: 2 IN THE MORNING
     Route: 065
     Dates: start: 20240806
  15. INFLUENZA VIRUS VACCINE [Concomitant]
     Active Substance: INFLUENZA VIRUS VACCINE
     Indication: Antiviral prophylaxis
     Route: 065
     Dates: start: 20230920
  16. PFIZER-BIONTECH COVID-19 VACCINE [Concomitant]
     Active Substance: TOZINAMERAN
     Indication: COVID-19 prophylaxis
     Dosage: 5TH BOOSTER DOSE
     Route: 065
     Dates: start: 20231110, end: 20231110
  17. PFIZER-BIONTECH COVID-19 VACCINE [Concomitant]
     Active Substance: TOZINAMERAN
     Indication: COVID-19 prophylaxis
     Dosage: 4TH BOOSTER
     Route: 065
     Dates: start: 20230623, end: 20230623
  18. PFIZER-BIONTECH COVID-19 VACCINE [Concomitant]
     Active Substance: TOZINAMERAN
     Indication: COVID-19 prophylaxis
     Dosage: 3RD BOOSTER
     Route: 065
     Dates: start: 20221115, end: 20221115
  19. PFIZER-BIONTECH COVID-19 VACCINE [Concomitant]
     Active Substance: TOZINAMERAN
     Indication: COVID-19 prophylaxis
     Dosage: 2ND BOOSTER DOSE
     Route: 065
     Dates: start: 20220623, end: 20220623
  20. PFIZER-BIONTECH COVID-19 VACCINE [Concomitant]
     Active Substance: TOZINAMERAN
     Indication: COVID-19 prophylaxis
     Dosage: 1ST BOOSTER
     Route: 065
     Dates: start: 20211027, end: 20211027
  21. PFIZER-BIONTECH COVID-19 VACCINE [Concomitant]
     Active Substance: TOZINAMERAN
     Indication: COVID-19 prophylaxis
     Dosage: 2ND  DOSE
     Route: 065
     Dates: start: 20210323, end: 20210323
  22. PFIZER-BIONTECH COVID-19 VACCINE [Concomitant]
     Active Substance: TOZINAMERAN
     Indication: COVID-19 prophylaxis
     Dosage: 1ST DOSE
     Route: 065
     Dates: start: 20210303, end: 20210303
  23. SHINGRIX [Concomitant]
     Active Substance: RECOMBINANT VARICELLA ZOSTER VIRUS (VZV) GLYCOPROTEIN E
     Indication: Antiviral prophylaxis
     Route: 065
     Dates: start: 20200814, end: 20200814
  24. SHINGRIX [Concomitant]
     Active Substance: RECOMBINANT VARICELLA ZOSTER VIRUS (VZV) GLYCOPROTEIN E
     Indication: Antiviral prophylaxis
     Route: 065
     Dates: start: 20200515, end: 20200515

REACTIONS (11)
  - Oesophageal stenosis [Not Recovered/Not Resolved]
  - Oesophageal dilation procedure [Unknown]
  - Spinal operation [Unknown]
  - Spinal operation [Recovered/Resolved]
  - Lumbar puncture [Unknown]
  - Epidural injection [Unknown]
  - Epidural injection [Unknown]
  - Epidural injection [Unknown]
  - Epidural injection [Unknown]
  - Dental cleaning [Unknown]
  - Rash macular [Unknown]

NARRATIVE: CASE EVENT DATE: 20220713
